FAERS Safety Report 7936740-7 (Version None)
Quarter: 2011Q4

REPORT INFORMATION
  Report Type: 
  Country: None (occurrence: None)
  Receive Date: 20111121
  Receipt Date: 20111109
  Transmission Date: 20120403
  Serious: Yes (Hospitalization)
  Sender: FDA-Public Use
  Company Number: DK-006416

PATIENT
  Sex: Female

DRUGS (2)
  1. MENOPUR [Suspect]
     Indication: INFERTILITY
     Dosage: (300 IU SUBCUTANEOUS)
     Route: 058
     Dates: start: 20110909, end: 20110910
  2. ZOLADEX [Concomitant]

REACTIONS (5)
  - HYPERSENSITIVITY [None]
  - LIP DISORDER [None]
  - LOCALISED OEDEMA [None]
  - PRURITUS [None]
  - ABDOMINAL DISCOMFORT [None]
